FAERS Safety Report 25316048 (Version 2)
Quarter: 2025Q2

REPORT INFORMATION
  Report Type: Spontaneous
  Country: US (occurrence: US)
  Receive Date: 20250515
  Receipt Date: 20250626
  Transmission Date: 20250717
  Serious: Yes (Other)
  Sender: NOVO NORDISK
  Company Number: US-NOVOPROD-1426938

PATIENT

DRUGS (1)
  1. OZEMPIC [Suspect]
     Active Substance: SEMAGLUTIDE
     Indication: Type 2 diabetes mellitus
     Route: 058

REACTIONS (9)
  - Immunodeficiency [Unknown]
  - Obesity [Unknown]
  - Iron deficiency [Unknown]
  - Anaemia [Unknown]
  - Cardiac disorder [Unknown]
  - Oedema [Unknown]
  - Lymphoedema [Unknown]
  - Cellulitis [Unknown]
  - Increased appetite [Unknown]
